FAERS Safety Report 12623626 (Version 1)
Quarter: 2016Q3

REPORT INFORMATION
  Report Type: Spontaneous
  Country: None (occurrence: DE)
  Receive Date: 20160804
  Receipt Date: 20160804
  Transmission Date: 20161109
  Serious: Yes (Hospitalization)
  Sender: FDA-Public Use
  Company Number: DE-ALLERGAN-1664851US

PATIENT
  Sex: Female

DRUGS (1)
  1. ESMYA [Suspect]
     Active Substance: ULIPRISTAL ACETATE
     Indication: UTERINE LEIOMYOMA
     Dosage: 5 MG, QD
     Route: 048

REACTIONS (2)
  - Uterine leiomyoma [Recovered/Resolved]
  - Uterine pain [Recovered/Resolved]
